FAERS Safety Report 23750305 (Version 2)
Quarter: 2024Q2

REPORT INFORMATION
  Report Type: Spontaneous
  Country: CA (occurrence: CA)
  Receive Date: 20240417
  Receipt Date: 20240610
  Transmission Date: 20240715
  Serious: Yes (Other)
  Sender: FDA-Public Use
  Company Number: CA-CELLTRION INC.-2024CA008956

PATIENT

DRUGS (5)
  1. INFLECTRA [Suspect]
     Active Substance: INFLIXIMAB-DYYB
     Indication: Birdshot chorioretinopathy
     Dosage: 250 MG, INDUCTION WEEK 0 ,2, 6 THEN MAINTENANCE EVERY 6 WEEKS
     Route: 042
     Dates: start: 20230317
  2. INFLECTRA [Suspect]
     Active Substance: INFLIXIMAB-DYYB
     Dosage: 250 MG, INDUCTION WEEK 0 ,2, 6 THEN MAINTENANCE EVERY 6 WEEKS
     Route: 042
     Dates: start: 20240223
  3. INFLECTRA [Suspect]
     Active Substance: INFLIXIMAB-DYYB
     Dosage: 250 MG, INDUCTION WEEK 0 ,2, 6 THEN MAINTENANCE EVERY 6 WEEKS
     Route: 042
     Dates: start: 20240408
  4. PREDNISONE [Concomitant]
     Active Substance: PREDNISONE
     Dosage: 40 MG
     Route: 048
  5. RANITIDINE [Concomitant]
     Active Substance: RANITIDINE
     Dosage: 150 MG
     Route: 048

REACTIONS (3)
  - Nephrolithiasis [Recovering/Resolving]
  - Renal colic [Recovering/Resolving]
  - Fatigue [Unknown]

NARRATIVE: CASE EVENT DATE: 20240301
